FAERS Safety Report 15105303 (Version 1)
Quarter: 2018Q3

REPORT INFORMATION
  Report Type: Other
  Country: DE (occurrence: DE)
  Receive Date: 20180704
  Receipt Date: 20180704
  Transmission Date: 20181010
  Serious: No
  Sender: FDA-Public Use
  Company Number: DE-LUPIN PHARMACEUTICALS INC.-2018-02529

PATIENT
  Age: 59 Year
  Sex: Male
  Weight: 112 kg

DRUGS (5)
  1. SIMVASTATIN. [Suspect]
     Active Substance: SIMVASTATIN
     Indication: CORONARY ARTERY DISEASE
     Dosage: 10 MG, UNK
     Route: 048
  2. ATORVASTATIN [Suspect]
     Active Substance: ATORVASTATIN
     Indication: HYPERCHOLESTEROLAEMIA
     Dosage: 80 MG, UNK
     Route: 048
  3. EZETIMIBE. [Concomitant]
     Active Substance: EZETIMIBE
     Indication: PRODUCT USED FOR UNKNOWN INDICATION
     Dosage: 10 MG, UNK
     Route: 048
  4. LOVASTATIN. [Suspect]
     Active Substance: LOVASTATIN
     Indication: PRODUCT USED FOR UNKNOWN INDICATION
     Dosage: UNK
     Route: 048
  5. PRAVASTATIN. [Suspect]
     Active Substance: PRAVASTATIN
     Indication: HYPERCHOLESTEROLAEMIA
     Dosage: UNK
     Route: 048

REACTIONS (2)
  - Myalgia [Recovered/Resolved]
  - Arthralgia [Recovered/Resolved]
